FAERS Safety Report 5588148-X (Version None)
Quarter: 2008Q1

REPORT INFORMATION
  Report Type: 
  Country: None (occurrence: None)
  Receive Date: 20071211
  Receipt Date: 20071002
  Transmission Date: 20080703
  Serious: No
  Sender: FDA-Public Use
  Company Number: 001#2#2007-00637

PATIENT
  Sex: Female

DRUGS (3)
  1. NEUPRO [Suspect]
     Indication: PARKINSON'S DISEASE
     Dosage: 4MG/24H,1 IN 1 D,TRANSDERMAL
     Route: 062
     Dates: start: 20070905
  2. CARBIDOPA AND LEVODOPA [Concomitant]
  3. PRAMIPEXOLE DIHYDROCHLORIDE [Concomitant]

REACTIONS (2)
  - FATIGUE [None]
  - SLEEP DISORDER [None]
